FAERS Safety Report 9012650 (Version 3)
Quarter: 2013Q2

REPORT INFORMATION
  Report Type: Spontaneous
  Country: US (occurrence: US)
  Receive Date: 20130114
  Receipt Date: 20130410
  Transmission Date: 20140414
  Serious: Yes (Hospitalization, Other)
  Sender: FDA-Public Use
  Company Number: US-PFIZER INC-2013014986

PATIENT
  Age: 64 Year
  Sex: Female
  Weight: 72.56 kg

DRUGS (7)
  1. DILANTIN [Suspect]
     Indication: CONVULSION
     Dosage: 360 MG (100 MG 3X/DAY AND ^30 MG^ 2X/DAY)
     Route: 048
  2. ATENOLOL [Concomitant]
     Indication: BLOOD PRESSURE ABNORMAL
     Dosage: 25 MG, DAILY
  3. SYNTHROID [Concomitant]
     Indication: THYROID DISORDER
     Dosage: 75 MG, DAILY
  4. LISINOPRIL [Concomitant]
     Indication: BLOOD PRESSURE ABNORMAL
     Dosage: 20 MG, DAILY
  5. TRIAMTERENE/HYDROCHLORTHIAZIDE [Concomitant]
     Indication: BLOOD PRESSURE ABNORMAL
     Dosage: 37.5/25 MG, DAILY
  6. KEPPRA [Concomitant]
     Indication: CONVULSION
     Dosage: 500 MG, 6X/DAY
  7. VIMPAT [Concomitant]
     Indication: CONVULSION
     Dosage: 50 MG, 3X/DAY

REACTIONS (1)
  - Myocardial infarction [Unknown]
